FAERS Safety Report 16655061 (Version 1)
Quarter: 2019Q3

REPORT INFORMATION
  Report Type: Spontaneous
  Country: CA (occurrence: CA)
  Receive Date: 20190801
  Receipt Date: 20190801
  Transmission Date: 20191004
  Serious: Yes (Hospitalization, Other)
  Sender: FDA-Public Use
  Company Number: CA-AUROBINDO-AUR-APL-2019-043933

PATIENT

DRUGS (15)
  1. PROPOFOL. [Suspect]
     Active Substance: PROPOFOL
     Indication: EPILEPSY
     Dosage: 50.0 MICROGRAM/KILOGRAM, 1 MINUTE
     Route: 051
  2. PROPOFOL. [Suspect]
     Active Substance: PROPOFOL
     Dosage: 50.0 MICROGRAM/KILOGRAM, EVERY 1 MINUTE
     Route: 051
  3. PROPOFOL. [Suspect]
     Active Substance: PROPOFOL
     Indication: STATUS EPILEPTICUS
     Dosage: 30 MILLIGRAM
     Route: 040
  4. MIDAZOLAM [Suspect]
     Active Substance: MIDAZOLAM HYDROCHLORIDE
     Dosage: 5.0 MILLIGRAM
     Route: 040
  5. LEVETIRACETAM TABLET [Suspect]
     Active Substance: LEVETIRACETAM
     Indication: EPILEPSY
     Dosage: 1500.0 MILLIGRAM, TWO TIMES A DAY
     Route: 065
  6. PHENYTOIN. [Suspect]
     Active Substance: PHENYTOIN
     Dosage: 450.0 MILLIGRAM, DAILY
     Route: 065
  7. MIDAZOLAM [Suspect]
     Active Substance: MIDAZOLAM HYDROCHLORIDE
     Indication: STATUS EPILEPTICUS
     Dosage: 5.0 MILLIGRAM
     Route: 040
  8. PHENYTOIN. [Concomitant]
     Active Substance: PHENYTOIN
     Indication: PRODUCT USED FOR UNKNOWN INDICATION
     Dosage: UNK
     Route: 065
  9. MIDAZOLAM [Suspect]
     Active Substance: MIDAZOLAM HYDROCHLORIDE
     Indication: EPILEPSY
     Dosage: 30.0 MILLIGRAM, EVERY HOUR
     Route: 040
  10. MIDAZOLAM [Suspect]
     Active Substance: MIDAZOLAM HYDROCHLORIDE
     Dosage: 5.0 MILLIGRAM
     Route: 040
  11. MIDAZOLAM [Suspect]
     Active Substance: MIDAZOLAM HYDROCHLORIDE
     Dosage: 30.0 MILLIGRAM
     Route: 051
  12. PHENYTOIN. [Suspect]
     Active Substance: PHENYTOIN
     Dosage: 150.0 MILLIGRAM, 3 TIMES A DAY
     Route: 065
  13. CLOBAZAM. [Concomitant]
     Active Substance: CLOBAZAM
     Indication: PRODUCT USED FOR UNKNOWN INDICATION
     Dosage: UNK
     Route: 065
  14. PROPOFOL. [Suspect]
     Active Substance: PROPOFOL
     Dosage: 30.0 MILLIGRAM
     Route: 040
  15. PHENYTOIN. [Suspect]
     Active Substance: PHENYTOIN
     Indication: EPILEPSY
     Dosage: 250.0 MILLIGRAM, DAILY
     Route: 065

REACTIONS (3)
  - Seizure [Unknown]
  - Hypotension [Unknown]
  - Drug ineffective [Unknown]
